FAERS Safety Report 8417405-4 (Version None)
Quarter: 2012Q2

REPORT INFORMATION
  Report Type: 
  Country: None (occurrence: None)
  Receive Date: 20120606
  Receipt Date: 20120601
  Transmission Date: 20120825
  Serious: Yes (Hospitalization)
  Sender: FDA-Public Use
  Company Number: JP-JNJFOC-20120409307

PATIENT
  Sex: Female
  Weight: 46 kg

DRUGS (17)
  1. DOMPERIDONE [Concomitant]
     Route: 048
     Dates: start: 20111226, end: 20120112
  2. DIOVAN [Concomitant]
     Route: 048
  3. CYTOTEC [Concomitant]
     Indication: PROPHYLAXIS
     Route: 048
  4. METHOTREXATE [Suspect]
     Indication: PRODUCT USED FOR UNKNOWN INDICATION
     Route: 048
     Dates: start: 20120206
  5. FOLIAMIN [Concomitant]
     Indication: PROPHYLAXIS
     Route: 048
  6. LIPITOR [Concomitant]
     Route: 048
  7. SIMPONI [Suspect]
     Indication: RHEUMATOID ARTHRITIS
     Route: 058
     Dates: start: 20120201, end: 20120221
  8. URSO 250 [Concomitant]
     Indication: PROPHYLAXIS
  9. CLARITHROMYCIN [Concomitant]
     Route: 048
  10. TRAMADOL HYDROCHLORIDE AND ACETAMINOPHEN [Suspect]
     Indication: RHEUMATOID ARTHRITIS
     Route: 048
     Dates: start: 20120124, end: 20120203
  11. TRAMADOL HYDROCHLORIDE AND ACETAMINOPHEN [Suspect]
     Route: 048
     Dates: start: 20111226, end: 20120112
  12. DOMPERIDONE [Concomitant]
     Indication: PROPHYLAXIS
     Route: 048
     Dates: start: 20120113, end: 20120203
  13. LANSOPRAZOLE [Concomitant]
     Indication: PROPHYLAXIS
     Route: 048
  14. ACTEMRA [Suspect]
     Indication: PRODUCT USED FOR UNKNOWN INDICATION
     Route: 041
     Dates: end: 20111221
  15. ITRACONAZOLE [Concomitant]
     Route: 048
  16. FORTEO [Concomitant]
     Route: 058
  17. TRAMADOL HYDROCHLORIDE AND ACETAMINOPHEN [Suspect]
     Route: 048
     Dates: start: 20120113, end: 20120123

REACTIONS (1)
  - GASTRIC CANCER [None]
